FAERS Safety Report 22227972 (Version 1)
Quarter: 2023Q2

REPORT INFORMATION
  Report Type: Spontaneous
  Country: DE (occurrence: DE)
  Receive Date: 20230419
  Receipt Date: 20230419
  Transmission Date: 20230721
  Serious: Yes (Other)
  Sender: FDA-Public Use
  Company Number: DE-002147023-NVSC2023DE071023

PATIENT
  Age: 80 Year
  Sex: Male

DRUGS (9)
  1. JANUMET [Suspect]
     Active Substance: METFORMIN HYDROCHLORIDE\SITAGLIPTIN PHOSPHATE
     Indication: Product used for unknown indication
     Dosage: UNK, BID (FREQUENCY: 1-0-1-0)
     Route: 065
  2. LEVOTHYROXINE SODIUM [Suspect]
     Active Substance: LEVOTHYROXINE SODIUM
     Indication: Product used for unknown indication
     Dosage: UNK, (FREQUENCY: 1-0-0-0), SUNDAY 1/2
     Route: 065
  3. RAMIPRIL [Suspect]
     Active Substance: RAMIPRIL
     Indication: Product used for unknown indication
     Dosage: UNK, BID (FREQUENCY: 1-0-1-0)
     Route: 065
  4. REPAGLINIDE [Suspect]
     Active Substance: REPAGLINIDE
     Indication: Product used for unknown indication
     Dosage: UNK, BID (FREQUENCY: 1-1-0-0)
     Route: 065
  5. HYALURONATE SODIUM [Suspect]
     Active Substance: HYALURONATE SODIUM
     Indication: Product used for unknown indication
     Dosage: 1 DRP (FREQUENCY: MAX.2X/ 24 H )
     Route: 065
  6. CHLORHEXIDINE HYDROCHLORIDE\DEXAMETHASONE\NYSTATIN [Suspect]
     Active Substance: CHLORHEXIDINE HYDROCHLORIDE\DEXAMETHASONE\NYSTATIN
     Indication: Product used for unknown indication
     Dosage: UNK, QD (FREQUENCY: 1-0-0-0)
     Route: 065
  7. ASPIRIN [Suspect]
     Active Substance: ASPIRIN
     Indication: Product used for unknown indication
     Dosage: UNK UNK, QD (FREQUENCY: 0-1-0-0)
     Route: 065
  8. FERRO-SANOL DUODENAL [Suspect]
     Active Substance: FERROUS GLYCINE SULFATE
     Indication: Product used for unknown indication
     Dosage: UNK, TID (FREQUENCY: 1-1-1-0)
     Route: 065
  9. PANTOPRAZOLE [Suspect]
     Active Substance: PANTOPRAZOLE
     Indication: Product used for unknown indication
     Dosage: UNK, QD (FREQUENCY: 1-0-0-0)
     Route: 065

REACTIONS (3)
  - Pneumonia [Unknown]
  - Tinnitus [Not Recovered/Not Resolved]
  - Contusion [Unknown]
